FAERS Safety Report 10017245 (Version 1)
Quarter: 2014Q1

REPORT INFORMATION
  Report Type: Spontaneous
  Country: US (occurrence: None)
  Receive Date: 20140313
  Receipt Date: 20140313
  Transmission Date: 20141002
  Serious: Yes (Other)
  Sender: FDA-Public Use
  Company Number: None

PATIENT
  Age: 78 Year
  Sex: Male
  Weight: 74.84 kg

DRUGS (1)
  1. SPIRIVA [Suspect]
     Indication: CHRONIC OBSTRUCTIVE PULMONARY DISEASE
     Dosage: 1 CAPSULE
     Route: 055
     Dates: start: 20140225

REACTIONS (7)
  - Device occlusion [None]
  - Pharyngeal disorder [None]
  - Discomfort [None]
  - Foreign body [None]
  - Incorrect dose administered [None]
  - Product physical issue [None]
  - Product quality issue [None]
